FAERS Safety Report 12688892 (Version 5)
Quarter: 2016Q4

REPORT INFORMATION
  Report Type: Report from Study
  Country: JP (occurrence: JP)
  Receive Date: 20160825
  Receipt Date: 20161105
  Transmission Date: 20170207
  Serious: Yes (Life-Threatening)
  Sender: FDA-Public Use
  Company Number: JP-ASTRAZENECA-2016SE89841

PATIENT
  Age: 15394 Day
  Sex: Male

DRUGS (45)
  1. INSULIN GLARGINE [Concomitant]
     Active Substance: INSULIN GLARGINE
     Route: 065
  2. CALCIUM GLUCONATE HYDRATE [Concomitant]
     Route: 065
  3. MAGNESIUM SULFATE HYDRATE [Concomitant]
     Active Substance: MAGNESIUM SULFATE HEPTAHYDRATE
     Route: 065
  4. PANTHENOL [Concomitant]
     Active Substance: PANTHENOL
     Route: 065
  5. MEPLERENONE [Concomitant]
     Route: 065
  6. INSULIN ASPART [Concomitant]
     Active Substance: INSULIN ASPART
     Route: 065
  7. ACETATED RINGER^S SOLUTION [Concomitant]
     Route: 065
  8. ROCURONIUM BROMIDE. [Concomitant]
     Active Substance: ROCURONIUM BROMIDE
     Route: 065
  9. PROPOFOL. [Concomitant]
     Active Substance: PROPOFOL
     Route: 065
  10. SODIUM PHOSPHATE [Concomitant]
     Active Substance: SODIUM PHOSPHATE
     Route: 065
  11. CARBOCISTEINE [Concomitant]
     Active Substance: CARBOCYSTEINE
  12. SOLITA-T NO1 [Concomitant]
     Route: 065
  13. SODIUM BICABONATE [Concomitant]
     Route: 065
  14. BROMHEXINE HYDROCHLORIDE [Concomitant]
     Active Substance: BROMHEXINE HYDROCHLORIDE
     Route: 065
  15. MIDAZOLAM [Concomitant]
     Active Substance: MIDAZOLAM\MIDAZOLAM HYDROCHLORIDE
     Route: 065
  16. LIDOCAINE. [Concomitant]
     Active Substance: LIDOCAINE
     Route: 065
  17. INSULIN GLULISINE [Concomitant]
     Active Substance: INSULIN GLULISINE
  18. ALBUMIN HUMAN SERUM [Concomitant]
     Route: 065
  19. NOREPINEPHRINE [Concomitant]
     Active Substance: NOREPINEPHRINE\NOREPINEPHRINE BITARTRATE
     Route: 065
  20. BFLUID [Concomitant]
     Active Substance: AMINO ACIDS\DEXTROSE\ELECTROLYTES NOS\VITAMINS
  21. HALOPERIDOL. [Concomitant]
     Active Substance: HALOPERIDOL
  22. CARBOCISTEINE [Concomitant]
     Active Substance: CARBOCYSTEINE
  23. INSULIN HUMAN (GENETICAL RECOMBINATION) [Concomitant]
     Route: 065
  24. POTASSIUM L-ASPARTATE [Concomitant]
     Active Substance: POTASSIUM ASPARTATE ANHYDROUS
     Route: 065
  25. VITAMEDIN [Concomitant]
     Active Substance: CYANOCOBALAMIN\PYRIDOXINE HYDROCHLORIDE\THIAMINE
     Route: 065
  26. SOLDEM3A [Concomitant]
     Route: 065
  27. FULCALIQ [Concomitant]
     Active Substance: AMINO ACIDS\CARBOHYDRATES\ELECTROLYTES NOS\VITAMINS
     Route: 065
  28. FUROSEMIDE. [Concomitant]
     Active Substance: FUROSEMIDE
     Route: 065
  29. METOCLOPRAMIDE HYDROCHLORIDE. [Concomitant]
     Active Substance: METOCLOPRAMIDE HYDROCHLORIDE
     Route: 065
  30. FLUNITRAZEPAM [Concomitant]
     Active Substance: FLUNITRAZEPAM
     Route: 065
  31. FENTANYL CITRATE. [Concomitant]
     Active Substance: FENTANYL CITRATE
     Route: 065
  32. GLUCOSE [Concomitant]
     Active Substance: DEXTROSE
     Route: 065
  33. RISPERIDONE. [Concomitant]
     Active Substance: RISPERIDONE
  34. FULCALIQ [Concomitant]
     Active Substance: AMINO ACIDS\CARBOHYDRATES\ELECTROLYTES NOS\VITAMINS
  35. HEPARIN SODIUM. [Concomitant]
     Active Substance: HEPARIN SODIUM
     Route: 065
  36. SALINE [Concomitant]
     Active Substance: SODIUM CHLORIDE
     Route: 065
  37. DEXMEDETOMIDINE HYDROCHLORIDE. [Concomitant]
     Active Substance: DEXMEDETOMIDINE HYDROCHLORIDE
     Route: 065
  38. FULCALIQ [Concomitant]
     Active Substance: AMINO ACIDS\CARBOHYDRATES\ELECTROLYTES NOS\VITAMINS
     Route: 065
  39. SODIUM PICOSULFATE HYDRATE [Concomitant]
  40. VONOPRAZAN FUMARATE [Concomitant]
     Active Substance: VONOPRAZAN FUMURATE
  41. DAPAGLIFLOZIN [Suspect]
     Active Substance: DAPAGLIFLOZIN
     Indication: TYPE 1 DIABETES MELLITUS
     Route: 048
     Dates: start: 20160415, end: 20160807
  42. MOSAPRIDE CITRATE HYDRATE [Concomitant]
     Active Substance: MOSAPRIDE CITRATE DIHYDRATE
     Route: 065
  43. THIAMINE CHLORIDE HYDROCHLORIDE [Concomitant]
     Route: 065
  44. OMEPRAZOLE SODIUM [Concomitant]
     Active Substance: OMEPRAZOLE SODIUM
  45. FUDOSTEINE [Concomitant]
     Active Substance: FUDOSTEINE

REACTIONS (2)
  - Cardiac arrest [Recovered/Resolved]
  - Diabetic hyperglycaemic coma [Recovered/Resolved]

NARRATIVE: CASE EVENT DATE: 20160809
